FAERS Safety Report 12118603 (Version 3)
Quarter: 2016Q2

REPORT INFORMATION
  Report Type: Spontaneous
  Country: TR (occurrence: TR)
  Receive Date: 20160226
  Receipt Date: 20160505
  Transmission Date: 20160815
  Serious: Yes (Death, Other)
  Sender: FDA-Public Use
  Company Number: TR-ACTAVIS-2016-04125

PATIENT
  Age: 38 Year
  Sex: Male

DRUGS (3)
  1. CISPLATIN. [Concomitant]
     Active Substance: CISPLATIN
     Indication: TESTICULAR NEOPLASM
     Dosage: UNK
     Route: 065
     Dates: start: 20131101
  2. ETOPOSIDE (UNKNOWN) [Suspect]
     Active Substance: ETOPOSIDE
     Indication: TESTICULAR NEOPLASM
     Dosage: UNK
     Route: 042
     Dates: start: 20131101
  3. BLEOMYCIN [Concomitant]
     Active Substance: BLEOMYCIN SULFATE
     Indication: TESTICULAR NEOPLASM
     Dosage: UNK
     Route: 065
     Dates: start: 20131101

REACTIONS (3)
  - Pneumatosis intestinalis [Fatal]
  - Intestinal ischaemia [Fatal]
  - Diabetic ketoacidosis [Unknown]
